FAERS Safety Report 5848291-4 (Version None)
Quarter: 2008Q3

REPORT INFORMATION
  Report Type: 
  Country: None (occurrence: None)
  Receive Date: 20080814
  Receipt Date: 20080814
  Transmission Date: 20090109
  Serious: Yes (Other)
  Sender: FDA-Public Use
  Company Number: None

PATIENT
  Age: 60 Year
  Sex: Female
  Weight: 94.1 kg

DRUGS (2)
  1. OXCARBAZEPINE [Suspect]
     Indication: CONVULSION
     Dosage: 300 MG BID OROPHARINGEAL
     Route: 049
     Dates: start: 20080809, end: 20080813
  2. LEVETIRACETAM [Suspect]
     Indication: CONVULSION
     Dosage: 500 MG Q 12 HOURS IV
     Route: 042
     Dates: start: 20080809, end: 20080810

REACTIONS (1)
  - HYPONATRAEMIA [None]
